FAERS Safety Report 9161266 (Version 3)
Quarter: 2014Q3

REPORT INFORMATION
  Report Type: Spontaneous
  Country: US (occurrence: US)
  Receive Date: 20130313
  Receipt Date: 20140707
  Transmission Date: 20150326
  Serious: Yes (Hospitalization, Other)
  Sender: FDA-Public Use
  Company Number: US-009507513-2012SP034996

PATIENT
  Sex: Female
  Weight: 77.98 kg

DRUGS (1)
  1. NUVARING [Suspect]
     Active Substance: ETHINYL ESTRADIOL\ETONOGESTREL
     Indication: CONTRACEPTION
     Dosage: 0.12-0.015 MG/24 HR, AS DIRECTED
     Route: 067
     Dates: start: 20050616, end: 200608

REACTIONS (22)
  - Hepatic vein thrombosis [Unknown]
  - Anxiety [Unknown]
  - Decreased appetite [Unknown]
  - Weight decreased [Unknown]
  - Polyp [Unknown]
  - Gastric disorder [Unknown]
  - Adenotonsillectomy [Unknown]
  - Pain [Unknown]
  - Ovarian cyst [Unknown]
  - Polypectomy [Unknown]
  - Gastritis [Unknown]
  - Nephrolithiasis [Unknown]
  - Hypertension [Unknown]
  - Portal vein thrombosis [Unknown]
  - Mesenteric vein thrombosis [Unknown]
  - Gastrooesophageal reflux disease [Unknown]
  - Irritable bowel syndrome [Unknown]
  - Migraine [Unknown]
  - Abdominal pain upper [Unknown]
  - Polyp [Unknown]
  - Pulmonary embolism [Unknown]
  - Deep vein thrombosis [Unknown]

NARRATIVE: CASE EVENT DATE: 2005
